FAERS Safety Report 8145166-5 (Version None)
Quarter: 2012Q1

REPORT INFORMATION
  Report Type: 
  Country: None (occurrence: None)
  Receive Date: 20120217
  Receipt Date: 20120214
  Transmission Date: 20120608
  Serious: No
  Sender: FDA-Public Use
  Company Number: PHEH2012US002422

PATIENT
  Sex: Male

DRUGS (12)
  1. TOPROL-XL [Concomitant]
  2. TAMIFLU [Concomitant]
  3. ASCORBIC ACID [Concomitant]
  4. ZITHROMAX [Concomitant]
  5. ASPIRIN [Concomitant]
  6. VITAMIN D [Concomitant]
  7. AMLODIPINE [Concomitant]
  8. TASIGNA [Suspect]
     Indication: CHRONIC MYELOID LEUKAEMIA
     Dosage: 300 MG, BID
     Route: 048
  9. HYZAAR [Concomitant]
  10. MULTI-VITAMIN [Concomitant]
  11. LOVAZA [Concomitant]
  12. LIPITOR [Concomitant]

REACTIONS (6)
  - DIARRHOEA [None]
  - FATIGUE [None]
  - PYREXIA [None]
  - RASH ERYTHEMATOUS [None]
  - WHITE BLOOD CELL COUNT DECREASED [None]
  - COUGH [None]
